FAERS Safety Report 9191212 (Version 1)
Quarter: 2013Q1

REPORT INFORMATION
  Report Type: Spontaneous
  Country: DE (occurrence: DE)
  Receive Date: 20130326
  Receipt Date: 20130326
  Transmission Date: 20140127
  Serious: Yes (Other)
  Sender: FDA-Public Use
  Company Number: DE-GLAXOSMITHKLINE-D0078425A

PATIENT
  Sex: Female
  Weight: 53 kg

DRUGS (5)
  1. BENLYSTA [Suspect]
     Indication: SYSTEMIC LUPUS ERYTHEMATOSUS
     Dosage: 520MG MONTHLY
     Route: 042
     Dates: start: 20111115
  2. MYFORTIC [Concomitant]
     Indication: SYSTEMIC LUPUS ERYTHEMATOSUS
     Dosage: 360MG THREE TIMES PER DAY
     Route: 048
     Dates: start: 2010
  3. QUENSYL [Concomitant]
     Indication: SYSTEMIC LUPUS ERYTHEMATOSUS
     Dosage: 200MG PER DAY
     Route: 048
     Dates: start: 2010
  4. DELIX [Concomitant]
     Indication: SYSTEMIC LUPUS ERYTHEMATOSUS
     Dosage: 2.5MG TWICE PER DAY
     Route: 048
     Dates: start: 2010
  5. JODID [Concomitant]
     Indication: SYSTEMIC LUPUS ERYTHEMATOSUS
     Dosage: 100MG PER DAY
     Route: 048
     Dates: start: 2009

REACTIONS (4)
  - Lymphadenopathy [Unknown]
  - Alopecia areata [Recovering/Resolving]
  - Diarrhoea [Not Recovered/Not Resolved]
  - Lymphadenectomy [Unknown]
